FAERS Safety Report 7427905-1 (Version None)
Quarter: 2011Q2

REPORT INFORMATION
  Report Type: 
  Country: None (occurrence: None)
  Receive Date: 20110421
  Receipt Date: 20110411
  Transmission Date: 20111010
  Serious: Yes (Death, Other)
  Sender: FDA-Public Use
  Company Number: DE-GENZYME-CAMP-1001385

PATIENT
  Sex: Female
  Weight: 73 kg

DRUGS (55)
  1. HYDROCHLOROTHIAZIDE [Concomitant]
     Indication: HYPERTENSION
     Dosage: 12.5 MG, UNK
     Route: 065
  2. EUTHYROX [Concomitant]
     Dosage: 100 MG, UNK
     Route: 065
  3. DOXORUBICIN [Suspect]
     Dosage: 50 MG/M2, ONCE
     Route: 065
     Dates: start: 20081111, end: 20081111
  4. DOXORUBICIN [Suspect]
     Dosage: 50 MG/M2, ONCE
     Route: 065
     Dates: start: 20090102, end: 20090102
  5. VINCRISTINE [Suspect]
     Dosage: 1.4 MG/M2, ONCE
     Route: 065
     Dates: start: 20081028, end: 20081028
  6. VINCRISTINE [Suspect]
     Dosage: 1.4 MG/M2, ONCE
     Route: 065
     Dates: start: 20090204, end: 20090204
  7. PREDNISONE [Suspect]
     Indication: PERIPHERAL T-CELL LYMPHOMA UNSPECIFIED
     Dosage: 100 MG, QDX7, PREPHASE
     Route: 065
     Dates: start: 20081014, end: 20081020
  8. PREDNISONE [Suspect]
     Dosage: 100 MG, QDX5
     Route: 065
     Dates: start: 20090204, end: 20090208
  9. FILGRASTIM [Concomitant]
     Dosage: 30 UNK, QD
     Route: 065
     Dates: start: 20081214, end: 20081222
  10. FLUCONAZOLE [Concomitant]
     Indication: ORAL CANDIDIASIS
     Dosage: UNK
     Route: 065
  11. DECORTIN [Concomitant]
     Indication: PRODUCT USED FOR UNKNOWN INDICATION
     Dosage: 100 MG, UNK
     Route: 065
  12. CAMPATH [Suspect]
     Dosage: 20 MG DOSE 2 OF CYCLE 1
     Route: 058
     Dates: start: 20080101, end: 20080101
  13. CAMPATH [Suspect]
     Dosage: 30 MG TWICE, CYCLE 2
     Route: 058
     Dates: start: 20081111, end: 20080101
  14. DOXORUBICIN [Suspect]
     Dosage: 50 MG/M2, ONCE
     Route: 065
     Dates: start: 20090116, end: 20090116
  15. DOXORUBICIN [Suspect]
     Dosage: 50 MG/M2, ONCE
     Route: 065
     Dates: start: 20090204, end: 20090204
  16. VINCRISTINE [Suspect]
     Dosage: 1.4 MG/M2, ONCE
     Route: 065
     Dates: start: 20090102, end: 20090102
  17. PREDNISONE [Suspect]
     Dosage: 100 MG, QDX5
     Route: 065
     Dates: start: 20081111, end: 20081115
  18. ACTRAPID [Concomitant]
     Indication: DIABETES MELLITUS
     Dosage: UNK
     Route: 065
  19. VIANI [Concomitant]
     Indication: DYSPNOEA
     Dosage: UNK
     Route: 065
  20. COTRIM FORTE EU RHO [Concomitant]
     Indication: PRODUCT USED FOR UNKNOWN INDICATION
     Dosage: UNK
     Route: 065
  21. VALTREX [Concomitant]
     Indication: PRODUCT USED FOR UNKNOWN INDICATION
     Dosage: 500 MG, UNK
     Route: 065
  22. CAMPATH [Suspect]
     Dosage: 30 MG TWICE, CYCLE 5
     Route: 058
     Dates: start: 20090116, end: 20090101
  23. CYCLOPHOSPHAMIDE [Suspect]
     Dosage: 750 MG/M2, ONCE
     Route: 065
     Dates: start: 20090102, end: 20090102
  24. CYCLOPHOSPHAMIDE [Suspect]
     Dosage: 750 MG/M2, ONCE
     Route: 065
     Dates: start: 20090116, end: 20090116
  25. DOXORUBICIN [Suspect]
     Indication: PERIPHERAL T-CELL LYMPHOMA UNSPECIFIED
     Dosage: 50 MG/M2, ONCE
     Route: 065
     Dates: start: 20081028, end: 20081028
  26. PREDNISONE [Suspect]
     Dosage: 100 MG, QDX5
     Route: 065
     Dates: start: 20081211, end: 20081215
  27. PREDNISONE [Suspect]
     Dosage: 100 MG, QDX5
     Route: 065
     Dates: start: 20090102, end: 20090106
  28. PANTOZOL [Concomitant]
     Indication: GASTRITIS
     Dosage: 40 UNK, UNK
     Route: 065
  29. RED BLOOD CELLS [Concomitant]
     Indication: PRODUCT USED FOR UNKNOWN INDICATION
     Dosage: 2 U, UNK
     Route: 065
  30. CAMPATH [Suspect]
     Dosage: 30 MG TWICE, CYCLE 4
     Route: 058
     Dates: start: 20090102, end: 20090101
  31. CYCLOPHOSPHAMIDE [Suspect]
     Dosage: 750 MG/M2, ONCE
     Route: 065
     Dates: start: 20081211, end: 20081211
  32. VINCRISTINE [Suspect]
     Indication: PERIPHERAL T-CELL LYMPHOMA UNSPECIFIED
     Dosage: PRE-PHASE, 1 MG
     Route: 065
     Dates: start: 20081014, end: 20081014
  33. VINCRISTINE [Suspect]
     Dosage: 1.4 MG/M2, ONCE
     Route: 065
     Dates: start: 20090116, end: 20090116
  34. FILGRASTIM [Concomitant]
     Dosage: 30 UNK, QD
     Route: 065
     Dates: start: 20090106, end: 20090113
  35. SAROTEN [Concomitant]
     Indication: ANXIETY
     Dosage: UNK
     Route: 064
  36. FRAGMIN [Concomitant]
     Dosage: UNK
     Route: 065
  37. CYCLOPHOSPHAMIDE [Suspect]
     Dosage: 750 MG/M2, ONCE
     Route: 065
     Dates: start: 20090204, end: 20090204
  38. BELOC ZOK [Concomitant]
     Indication: HYPERTENSION
     Dosage: UNK
     Route: 065
  39. CAMPATH [Suspect]
     Dosage: 30 MG DOSE 3  OF CYCLE 1
     Route: 058
     Dates: start: 20080101, end: 20080101
  40. CYCLOPHOSPHAMIDE [Suspect]
     Dosage: 750 MG/M2, ONCE
     Route: 065
     Dates: start: 20081111, end: 20081111
  41. DOXORUBICIN [Suspect]
     Dosage: 50 MG/M2, ONCE
     Route: 065
     Dates: start: 20081211, end: 20081211
  42. VINCRISTINE [Suspect]
     Dosage: 1.4 MG/M2, ONCE
     Route: 065
     Dates: start: 20081211, end: 20081211
  43. FILGRASTIM [Concomitant]
     Dosage: 30 UNK, QD
     Route: 065
     Dates: start: 20090126, end: 20090130
  44. FILGRASTIM [Concomitant]
     Dosage: 30 UNK, QD
     Route: 065
     Dates: start: 20090208, end: 20090216
  45. DELIX [Concomitant]
     Indication: PRODUCT USED FOR UNKNOWN INDICATION
     Dosage: 5 MG, UNK
     Route: 065
  46. NOVALGIN [Concomitant]
     Indication: PRODUCT USED FOR UNKNOWN INDICATION
     Dosage: UNK
     Route: 065
  47. CAMPATH [Suspect]
     Indication: PERIPHERAL T-CELL LYMPHOMA UNSPECIFIED
     Dosage: 10 MG DOSE 1 OF CYCLE 1
     Route: 058
     Dates: start: 20081028, end: 20081028
  48. CYCLOPHOSPHAMIDE [Suspect]
     Indication: PERIPHERAL T-CELL LYMPHOMA UNSPECIFIED
     Dosage: 750 MG/M2, ONCE
     Route: 065
     Dates: start: 20081028, end: 20081028
  49. VINCRISTINE [Suspect]
     Dosage: 1.4 MG/M2, ONCE
     Route: 065
     Dates: start: 20081111, end: 20081111
  50. PREDNISONE [Suspect]
     Dosage: 100 MG, QDX5
     Route: 065
     Dates: start: 20081028, end: 20081101
  51. PREDNISONE [Suspect]
     Dosage: 100 MG, QDX5
     Route: 065
     Dates: start: 20090116, end: 20090120
  52. LENOGRASTIM [Concomitant]
     Indication: PROPHYLAXIS
     Dosage: UNK
     Route: 065
     Dates: start: 20081031, end: 20081107
  53. FILGRASTIM [Concomitant]
     Indication: PROPHYLAXIS
     Dosage: 30 UNK, QD
     Route: 065
     Dates: start: 20081114, end: 20081128
  54. AMPHOTERICIN B [Concomitant]
     Indication: ORAL CANDIDIASIS
     Dosage: UNK
     Route: 065
  55. NATRIUMKLORID BAXTER [Concomitant]
     Indication: PRODUCT USED FOR UNKNOWN INDICATION
     Dosage: UNK
     Route: 065

REACTIONS (21)
  - IMMUNOSUPPRESSION [None]
  - PARAESTHESIA [None]
  - NAUSEA [None]
  - MUCOSAL INFLAMMATION [None]
  - CARDIAC DISORDER [None]
  - PYREXIA [None]
  - MOOD ALTERED [None]
  - STOMATITIS [None]
  - DIARRHOEA [None]
  - EPSTEIN-BARR VIRUS INFECTION [None]
  - GAMMA-GLUTAMYLTRANSFERASE INCREASED [None]
  - FUNGAL INFECTION [None]
  - EPSTEIN-BARR VIRUS ASSOCIATED LYMPHOPROLIFERATIVE DISORDER [None]
  - CONSTIPATION [None]
  - ANAEMIA [None]
  - NEUTROPENIA [None]
  - NOROVIRUS TEST POSITIVE [None]
  - PARONYCHIA [None]
  - FEBRILE NEUTROPENIA [None]
  - VOMITING [None]
  - GENERAL PHYSICAL HEALTH DETERIORATION [None]
